FAERS Safety Report 6946050-2 (Version None)
Quarter: 2010Q3

REPORT INFORMATION
  Report Type: 
  Country: None (occurrence: None)
  Receive Date: 20100827
  Receipt Date: 20100513
  Transmission Date: 20110219
  Serious: No
  Sender: FDA-Public Use
  Company Number: A0859568A

PATIENT
  Age: 23 Year
  Sex: Female

DRUGS (2)
  1. ZOVIRAX [Suspect]
     Indication: GENITAL HERPES
     Dosage: 1600MG PER DAY
     Route: 048
  2. NO CONCURRENT MEDICATION [Concomitant]

REACTIONS (2)
  - DRUG INEFFECTIVE [None]
  - HERPES VIRUS INFECTION [None]
